FAERS Safety Report 14006138 (Version 1)
Quarter: 2017Q3

REPORT INFORMATION
  Report Type: Report from Study
  Country: None (occurrence: FR)
  Receive Date: 20170924
  Receipt Date: 20170924
  Transmission Date: 20171128
  Serious: Yes (Hospitalization)
  Sender: FDA-Public Use
  Company Number: FR-BIOGEN-2017BV000033

PATIENT
  Age: 43 Year
  Sex: Male
  Weight: 76 kg

DRUGS (12)
  1. RFIXFC [Suspect]
     Active Substance: EFTRENONACOG ALFA
     Dosage: ONCE
     Route: 042
     Dates: start: 20170426
  2. RFIXFC [Suspect]
     Active Substance: EFTRENONACOG ALFA
     Route: 042
     Dates: start: 20170330, end: 20170402
  3. ROPIVACAINE [Concomitant]
     Active Substance: ROPIVACAINE
     Indication: PROCEDURAL PAIN
     Route: 042
     Dates: start: 20170330, end: 20170402
  4. RFIXFC [Suspect]
     Active Substance: EFTRENONACOG ALFA
     Indication: PROPHYLAXIS
     Dosage: ONCE
     Route: 042
     Dates: start: 20170317
  5. RFIXFC [Suspect]
     Active Substance: EFTRENONACOG ALFA
     Indication: PROPHYLAXIS
     Route: 042
     Dates: start: 20170404, end: 20170408
  6. RFIXFC [Suspect]
     Active Substance: EFTRENONACOG ALFA
     Dosage: 40 MG/KG UI
     Route: 065
  7. NEURONTIN [Concomitant]
     Active Substance: GABAPENTIN
     Indication: PREOPERATIVE CARE
     Dosage: SINGLE DOSE
     Route: 048
     Dates: start: 20170330, end: 20170330
  8. CEFAZOLINE [Concomitant]
     Active Substance: CEFAZOLIN SODIUM
     Indication: PREOPERATIVE CARE
     Route: 042
     Dates: start: 20170330, end: 20170330
  9. CETIRIZINE [Concomitant]
     Active Substance: CETIRIZINE HYDROCHLORIDE
     Indication: PREOPERATIVE CARE
     Dosage: SINGLE DOSE; 1 CP
     Route: 048
     Dates: start: 20170329, end: 20170507
  10. RFIXFC [Suspect]
     Active Substance: EFTRENONACOG ALFA
     Indication: PROPHYLAXIS
     Dosage: ONCE
     Route: 042
     Dates: start: 20170330
  11. RFIXFC [Suspect]
     Active Substance: EFTRENONACOG ALFA
     Dosage: 40 MG/KG UI
     Route: 065
     Dates: start: 20110710
  12. RFIXFC [Suspect]
     Active Substance: EFTRENONACOG ALFA
     Indication: FACTOR IX DEFICIENCY
     Route: 042
     Dates: start: 2012

REACTIONS (1)
  - Knee arthroplasty [Recovered/Resolved]

NARRATIVE: CASE EVENT DATE: 20170329
